FAERS Safety Report 4289016-6 (Version None)
Quarter: 2004Q1

REPORT INFORMATION
  Report Type: 
  Country: None (occurrence: None)
  Receive Date: 20040203
  Receipt Date: 20031016
  Transmission Date: 20041129
  Serious: No
  Sender: FDA-Public Use
  Company Number: 03P-163-0237994-00

PATIENT
  Sex: Male

DRUGS (3)
  1. VICODIN [Suspect]
     Indication: SURGERY
  2. LORCET-HD [Suspect]
     Indication: SURGERY
  3. OXYCONTIN [Suspect]
     Indication: SURGERY

REACTIONS (2)
  - DEAFNESS [None]
  - DRUG DEPENDENCE [None]
